FAERS Safety Report 5699128-8 (Version None)
Quarter: 2008Q2

REPORT INFORMATION
  Report Type: 
  Country: None (occurrence: None)
  Receive Date: 20080407
  Receipt Date: 20080407
  Transmission Date: 20081010
  Serious: Yes (Hospitalization)
  Sender: FDA-Public Use
  Company Number: None

PATIENT
  Age: 47 Year
  Sex: Male
  Weight: 81.6475 kg

DRUGS (2)
  1. DOXYCYCLINE HYCLATE [Suspect]
     Indication: VIRAL INFECTION
     Dosage: 1 CAPSULE  2X A DAY  PO
     Route: 048
     Dates: start: 20080228, end: 20080413
  2. CEPHALEXIN MONOHYDRATE [Suspect]
     Indication: INFLUENZA
     Dosage: 1 CAPSULE  4X A DAY  PO
     Route: 047
     Dates: start: 20080403, end: 20080413

REACTIONS (4)
  - BLISTER [None]
  - DYSPNOEA [None]
  - NERVOUSNESS [None]
  - SCAR [None]
